FAERS Safety Report 9126003 (Version 1)
Quarter: 2013Q1

REPORT INFORMATION
  Report Type: Spontaneous
  Country: US (occurrence: US)
  Receive Date: 20130121
  Receipt Date: 20130121
  Transmission Date: 20140127
  Serious: Yes (Death, Other)
  Sender: FDA-Public Use
  Company Number: US-UCBSA-075022

PATIENT
  Age: 43 Year
  Sex: Female

DRUGS (4)
  1. HYDROCODONE /ACETAMINOPHEN [Suspect]
  2. FENTANYL [Suspect]
  3. VENLAFAXINE [Suspect]
  4. PROMETHAZINE [Suspect]

REACTIONS (1)
  - Drug abuse [Fatal]
